FAERS Safety Report 8507473-3 (Version None)
Quarter: 2012Q3

REPORT INFORMATION
  Report Type: 
  Country: None (occurrence: None)
  Receive Date: 20120712
  Receipt Date: 20120224
  Transmission Date: 20120928
  Serious: Yes (Disabling)
  Sender: FDA-Public Use
  Company Number: PHHY2012CA059120

PATIENT
  Sex: Female

DRUGS (2)
  1. ARICEPT [Suspect]
  2. EXELON [Suspect]
     Indication: DEMENTIA ALZHEIMER'S TYPE
     Route: 062

REACTIONS (4)
  - INCONTINENCE [None]
  - AUTONOMIC NERVOUS SYSTEM IMBALANCE [None]
  - PNEUMONIA [None]
  - DISORIENTATION [None]
